FAERS Safety Report 4787255-9 (Version None)
Quarter: 2005Q4

REPORT INFORMATION
  Report Type: 
  Country: None (occurrence: None)
  Receive Date: 20051004
  Receipt Date: 20050928
  Transmission Date: 20060501
  Serious: Yes (Hospitalization)
  Sender: FDA-Public Use
  Company Number: JP-BRISTOL-MYERS SQUIBB COMPANY-13127139

PATIENT
  Age: 29 Year
  Sex: Male

DRUGS (9)
  1. STOCRIN [Suspect]
     Indication: HIV INFECTION
     Route: 048
     Dates: start: 20030625, end: 20030815
  2. ZERIT [Suspect]
     Indication: HIV INFECTION
     Route: 048
     Dates: start: 20030701, end: 20030815
  3. EPIVIR [Suspect]
     Indication: HIV INFECTION
     Route: 048
     Dates: start: 20030625, end: 20030815
  4. DENOSINE [Suspect]
     Route: 041
     Dates: start: 20030620, end: 20030815
  5. ZITHROMAC [Suspect]
     Route: 048
     Dates: start: 20030630, end: 20030815
  6. ESANBUTOL [Suspect]
     Route: 048
     Dates: start: 20030630, end: 20030815
  7. RIFADIN [Suspect]
     Route: 048
     Dates: start: 20030702, end: 20030815
  8. COTRIM [Suspect]
     Route: 048
     Dates: start: 20030620, end: 20030815
  9. RETROVIR [Concomitant]
     Route: 048
     Dates: start: 20030625, end: 20030630

REACTIONS (1)
  - CEREBRAL TOXOPLASMOSIS [None]
